FAERS Safety Report 8333885-7 (Version None)
Quarter: 2012Q2

REPORT INFORMATION
  Report Type: 
  Country: None (occurrence: None)
  Receive Date: 20120503
  Receipt Date: 20120502
  Transmission Date: 20120825
  Serious: Yes (Other)
  Sender: FDA-Public Use
  Company Number: EG-ROCHE-1064868

PATIENT
  Sex: Female

DRUGS (2)
  1. FEMARA [Suspect]
     Indication: BREAST CANCER METASTATIC
     Route: 048
  2. AVASTIN [Suspect]
     Indication: BREAST CANCER METASTATIC
     Route: 041

REACTIONS (3)
  - HEPATOTOXICITY [None]
  - ANAEMIA [None]
  - HYPOALBUMINAEMIA [None]
